FAERS Safety Report 9932380 (Version 1)
Quarter: 2014Q1

REPORT INFORMATION
  Report Type: Spontaneous
  Country: US (occurrence: None)
  Receive Date: 20140227
  Receipt Date: 20140227
  Transmission Date: 20141002
  Serious: Yes (Disabling)
  Sender: FDA-Public Use
  Company Number: None

PATIENT
  Age: 83 Year
  Sex: Male
  Weight: 65.77 kg

DRUGS (2)
  1. LEVOQUIN [Suspect]
     Indication: PNEUMONIA
     Dates: start: 20140210, end: 20140215
  2. PREDNISONE [Suspect]
     Route: 048

REACTIONS (2)
  - Tendonitis [None]
  - Gait disturbance [None]
